FAERS Safety Report 7467403-2 (Version None)
Quarter: 2011Q2

REPORT INFORMATION
  Report Type: 
  Country: None (occurrence: None)
  Receive Date: 20110509
  Receipt Date: 20101220
  Transmission Date: 20111010
  Serious: No
  Sender: FDA-Public Use
  Company Number: US-ALEXION-A201001646

PATIENT
  Sex: Female

DRUGS (11)
  1. CORGARD [Concomitant]
     Dosage: 20 MG, AT NIGHT (QHS)
  2. GLUCOSAMINE/CHONDROITIN            /01625901/ [Concomitant]
     Dosage: 1500-1200 MG/30 ML AS DIRECTED
     Route: 048
  3. FOLIC ACID [Concomitant]
     Dosage: 1 MG, QD
  4. SOLIRIS [Suspect]
     Indication: PAROXYSMAL NOCTURNAL HAEMOGLOBINURIA
     Dosage: 900 MG, Q2W
     Route: 042
  5. SYNTHROID [Concomitant]
     Dosage: 50 UG, QD
     Route: 048
  6. DILANTIN [Concomitant]
     Dosage: 2 CAPSULES AT NIGHT (QHS)
  7. VITAMIN A [Concomitant]
     Dosage: 50000 IU, ONCE PER MONTH
     Route: 048
  8. NORVASC [Concomitant]
     Dosage: 5 MG, QD
  9. EVISTA                             /01303201/ [Concomitant]
     Dosage: 60 MG, QD
  10. NEBIVOLOL HCL [Concomitant]
     Dosage: 5 MG, QD
  11. ZOLOFT [Concomitant]
     Dosage: 50 MG, QD

REACTIONS (4)
  - FATIGUE [None]
  - CHROMATURIA [None]
  - DYSPNOEA [None]
  - CONDITION AGGRAVATED [None]
